FAERS Safety Report 22333422 (Version 1)
Quarter: 2023Q2

REPORT INFORMATION
  Report Type: Spontaneous
  Country: ES (occurrence: None)
  Receive Date: 20230517
  Receipt Date: 20230517
  Transmission Date: 20230721
  Serious: Yes (Other)
  Sender: FDA-Public Use
  Company Number: ES-ROCHE-3350196

PATIENT
  Age: 64 Year
  Sex: Female

DRUGS (1)
  1. RIVOTRIL [Suspect]
     Active Substance: CLONAZEPAM
     Indication: Tremor
     Dosage: 1 BOTTLE OF 10 ML
     Route: 048
     Dates: start: 2022, end: 2023

REACTIONS (4)
  - Somnolence [Recovering/Resolving]
  - Sleep disorder [Recovering/Resolving]
  - Muscular weakness [Recovering/Resolving]
  - Off label use [Unknown]

NARRATIVE: CASE EVENT DATE: 20220101
